FAERS Safety Report 8319891-7 (Version None)
Quarter: 2012Q2

REPORT INFORMATION
  Report Type: 
  Country: None (occurrence: None)
  Receive Date: 20120427
  Receipt Date: 20120424
  Transmission Date: 20120825
  Serious: Yes (Death)
  Sender: FDA-Public Use
  Company Number: US-CELGENEUS-163-21880-12031601

PATIENT
  Sex: Female
  Weight: 58.475 kg

DRUGS (4)
  1. REVLIMID [Suspect]
     Indication: MULTIPLE MYELOMA
     Dosage: 10 MILLIGRAM
     Route: 048
     Dates: start: 20111215, end: 20120311
  2. DEXAMETHASONE [Concomitant]
     Indication: MULTIPLE MYELOMA
     Dosage: 5 TABS
     Route: 048
     Dates: start: 20111215
  3. TRIAMTERONE/HYDROCHLOROTHIAZIDE [Concomitant]
     Indication: HYPOTHYROIDISM
     Dosage: 37.5-25MG
     Route: 065
  4. ASPIRIN [Concomitant]
     Dosage: 1
     Route: 048

REACTIONS (1)
  - MYOCARDIAL INFARCTION [None]
